FAERS Safety Report 6888305-6 (Version None)
Quarter: 2010Q3

REPORT INFORMATION
  Report Type: 
  Country: None (occurrence: None)
  Receive Date: 20100730
  Receipt Date: 20100723
  Transmission Date: 20110219
  Serious: Yes (Death, Congenital Anomaly, Other)
  Sender: FDA-Public Use
  Company Number: BR-BRISTOL-MYERS SQUIBB COMPANY-15212558

PATIENT

DRUGS (3)
  1. VIDEX [Suspect]
     Route: 064
     Dates: start: 20030513, end: 20030702
  2. VIRACEPT [Suspect]
     Route: 064
     Dates: start: 20030513, end: 20030702
  3. IRON [Suspect]

REACTIONS (2)
  - ANENCEPHALY [None]
  - STILLBIRTH [None]
